FAERS Safety Report 24764152 (Version 3)
Quarter: 2025Q1

REPORT INFORMATION
  Report Type: Spontaneous
  Country: JP (occurrence: JP)
  Receive Date: 20241223
  Receipt Date: 20250209
  Transmission Date: 20250409
  Serious: Yes (Death)
  Sender: JOHNSON AND JOHNSON
  Company Number: JP-JNJFOC-20241251303

PATIENT
  Age: 8 Decade
  Sex: Female

DRUGS (3)
  1. OPSUMIT [Suspect]
     Active Substance: MACITENTAN
     Indication: Pulmonary arterial hypertension
     Route: 048
  2. TADALAFIL [Concomitant]
     Active Substance: TADALAFIL
     Indication: Pulmonary arterial hypertension
     Route: 048
  3. UPTRAVI [Concomitant]
     Active Substance: SELEXIPAG
     Indication: Pulmonary arterial hypertension
     Dosage: END DATE 31-OCT-2024
     Route: 048
     Dates: start: 20230410, end: 2024

REACTIONS (2)
  - Systemic scleroderma [Fatal]
  - Pulmonary hypertension [Fatal]
